FAERS Safety Report 6983593-X (Version None)
Quarter: 2010Q3

REPORT INFORMATION
  Report Type: 
  Country: None (occurrence: None)
  Receive Date: 20100914
  Receipt Date: 20080915
  Transmission Date: 20110219
  Serious: No
  Sender: FDA-Public Use
  Company Number: US-WYE-H06028408

PATIENT
  Age: 81 Year
  Sex: Female
  Weight: 72.64 kg

DRUGS (2)
  1. ADVIL LIQUI-GELS [Suspect]
     Indication: KNEE ARTHROPLASTY
     Dosage: 1 TO 2 TABLETS EVERY 4 TO 6 HOURS
     Route: 048
     Dates: start: 20080901
  2. ADVIL LIQUI-GELS [Suspect]
     Indication: PAIN

REACTIONS (3)
  - FREQUENT BOWEL MOVEMENTS [None]
  - POLLAKIURIA [None]
  - TREMOR [None]
